FAERS Safety Report 25101094 (Version 1)
Quarter: 2025Q1

REPORT INFORMATION
  Report Type: Report from Study
  Country: HK (occurrence: HK)
  Receive Date: 20250320
  Receipt Date: 20250320
  Transmission Date: 20250409
  Serious: Yes (Death, Other)
  Sender: VERITY PHARMACEUTICALS INC.
  Company Number: HK-VER-202500001

PATIENT
  Sex: Male

DRUGS (1)
  1. TRIPTORELIN PAMOATE [Suspect]
     Active Substance: TRIPTORELIN PAMOATE
     Indication: Prostate cancer
     Route: 065

REACTIONS (8)
  - Cognitive disorder [Unknown]
  - Death [Fatal]
  - Malignant neoplasm progression [Fatal]
  - Fatigue [Unknown]
  - Hot flush [Unknown]
  - Insomnia [Unknown]
  - Night sweats [Unknown]
  - Respiratory disorder [Fatal]
